FAERS Safety Report 15366565 (Version 1)
Quarter: 2018Q3

REPORT INFORMATION
  Report Type: Spontaneous
  Country: US (occurrence: US)
  Receive Date: 20180901
  Receipt Date: 20180901
  Transmission Date: 20181010
  Serious: Yes (Life-Threatening)
  Sender: FDA-Public Use
  Company Number: None

PATIENT
  Age: 43 Year
  Sex: Female
  Weight: 117 kg

DRUGS (7)
  1. LISINIPRIL [Concomitant]
     Active Substance: LISINOPRIL
  2. ERGOCALCIFEROL. [Concomitant]
     Active Substance: ERGOCALCIFEROL
  3. ER METFORMIN [Suspect]
     Active Substance: METFORMIN HYDROCHLORIDE
     Indication: TYPE 2 DIABETES MELLITUS
  4. DETEMIR [Concomitant]
     Active Substance: INSULIN DETEMIR
  5. GABAPENTIN. [Concomitant]
     Active Substance: GABAPENTIN
  6. FERROUS SULFATE. [Concomitant]
     Active Substance: FERROUS SULFATE
  7. FLINSTONES MULTIVITAMIN WITHOUT IRON [Concomitant]

REACTIONS (3)
  - Secretion discharge [None]
  - Ageusia [None]
  - Renal failure [None]

NARRATIVE: CASE EVENT DATE: 20160116
